FAERS Safety Report 9692218 (Version 3)
Quarter: 2014Q1

REPORT INFORMATION
  Report Type: Spontaneous
  Country: US (occurrence: US)
  Receive Date: 20131118
  Receipt Date: 20140212
  Transmission Date: 20141002
  Serious: No
  Sender: FDA-Public Use
  Company Number: US-B.I. PHARMACEUTICALS,INC./RIDGEFIELD-2013-BI-36105BP

PATIENT
  Age: 63 Year
  Sex: Female
  Weight: 61.4 kg

DRUGS (4)
  1. SPIRIVA [Suspect]
     Indication: BRONCHITIS CHRONIC
     Dosage: 18 MCG
     Route: 055
     Dates: start: 20131025
  2. SPIRIVA [Suspect]
     Indication: ASTHMA
  3. SPIRIVA [Suspect]
     Indication: CHRONIC OBSTRUCTIVE PULMONARY DISEASE
  4. SYMBICORT [Concomitant]
     Indication: BRONCHITIS CHRONIC
     Dosage: 4 PUF
     Route: 055
     Dates: start: 201310

REACTIONS (4)
  - Pulmonary congestion [Unknown]
  - Product quality issue [Unknown]
  - Product quality issue [Unknown]
  - Product quality issue [Recovered/Resolved]
